FAERS Safety Report 9114166 (Version 2)
Quarter: 2014Q1

REPORT INFORMATION
  Report Type: Spontaneous
  Country: US (occurrence: US)
  Receive Date: 20130208
  Receipt Date: 20140109
  Transmission Date: 20141002
  Serious: Yes (Other)
  Sender: FDA-Public Use
  Company Number: US-PFIZER INC-2013049142

PATIENT
  Age: 75 Year
  Sex: Female
  Weight: 74.83 kg

DRUGS (4)
  1. NORVASC [Suspect]
     Indication: HYPERTENSION
     Dosage: 20 MG, DAILY
     Route: 048
  2. IRBESARTAN [Suspect]
     Indication: HYPERTENSION
     Dosage: UNK
  3. LOSARTAN POTASSIUM [Suspect]
     Indication: HYPERTENSION
     Dosage: UNK
  4. AVAPRO [Suspect]
     Indication: HYPERTENSION
     Dosage: 75 MG, DAILY

REACTIONS (2)
  - Blindness [Unknown]
  - Off label use [Not Recovered/Not Resolved]
